FAERS Safety Report 10753004 (Version 1)
Quarter: 2015Q1

REPORT INFORMATION
  Report Type: Spontaneous
  Country: US (occurrence: US)
  Receive Date: 20150130
  Receipt Date: 20150130
  Transmission Date: 20150721
  Serious: No
  Sender: FDA-Public Use
  Company Number: US-009507513-1501USA007196

PATIENT
  Age: 19 Year
  Sex: Female

DRUGS (3)
  1. DEPO-PROVERA [Suspect]
     Active Substance: MEDROXYPROGESTERONE ACETATE
     Indication: CONTRACEPTION
  2. TEMODAR [Suspect]
     Active Substance: TEMOZOLOMIDE
     Indication: ANAPLASTIC OLIGODENDROGLIOMA
     Dosage: 200 MG/M2 PER DOSE FOR 5 DAYS EVERY 28 DAYS
     Route: 048
  3. TEMODAR [Suspect]
     Active Substance: TEMOZOLOMIDE
     Dosage: 90 MG/M2/D FOR 6 WEEKS
     Route: 048

REACTIONS (1)
  - Exposure during pregnancy [Recovered/Resolved]
